FAERS Safety Report 5476008-4 (Version None)
Quarter: 2007Q4

REPORT INFORMATION
  Report Type: 
  Country: None (occurrence: None)
  Receive Date: 20071003
  Receipt Date: 20070921
  Transmission Date: 20080405
  Serious: Yes (Other)
  Sender: FDA-Public Use
  Company Number: GR-ROCHE-521323

PATIENT
  Sex: Female
  Weight: 103 kg

DRUGS (1)
  1. XENICAL [Suspect]
     Indication: OBESITY
     Route: 065
     Dates: start: 20061006

REACTIONS (4)
  - ANDROGENS DECREASED [None]
  - DRUG INEFFECTIVE [None]
  - HORMONE LEVEL ABNORMAL [None]
  - POLYCYSTIC OVARIES [None]
